FAERS Safety Report 5725065-6 (Version None)
Quarter: 2008Q2

REPORT INFORMATION
  Report Type: 
  Country: None (occurrence: None)
  Receive Date: 20080429
  Receipt Date: 20080414
  Transmission Date: 20081010
  Serious: Yes (Other)
  Sender: FDA-Public Use
  Company Number: 2008S1006181

PATIENT
  Age: 36 Year
  Sex: Female

DRUGS (1)
  1. METOPROLOL TARTRATE [Suspect]
     Indication: DRUG USE FOR UNKNOWN INDICATION
     Dosage: 2600 MG; ONCE; ORAL
     Route: 048

REACTIONS (2)
  - HYPOTENSION [None]
  - INTENTIONAL OVERDOSE [None]
